FAERS Safety Report 8927821 (Version 1)
Quarter: 2012Q4

REPORT INFORMATION
  Report Type: Report from Study
  Country: JP (occurrence: JP)
  Receive Date: 20121127
  Receipt Date: 20121127
  Transmission Date: 20130627
  Serious: Yes (Hospitalization, Other)
  Sender: FDA-Public Use
  Company Number: JP-VERTEX PHARMACEUTICAL INC.-AE-2012-004048

PATIENT
  Age: 60 Year
  Sex: Female

DRUGS (11)
  1. VX-950 (TELAPREVIR) [Suspect]
     Indication: CHRONIC HEPATITIS C
     Dosage: 2250 mg, qd
     Route: 048
     Dates: start: 20120201, end: 20120228
  2. VX-950 (TELAPREVIR) [Suspect]
     Dosage: 1500 mg, qd
     Route: 048
     Dates: start: 20120229, end: 20120307
  3. PEGINTERFERON ALFA-2B [Suspect]
     Indication: CHRONIC HEPATITIS C
     Dosage: 1.5 ?g/kg, qw
     Route: 058
     Dates: start: 20120201, end: 20120222
  4. PEGINTERFERON ALFA-2B [Suspect]
     Dosage: 1.0 ?g/kg, qw
     Route: 058
     Dates: start: 20120229, end: 20120229
  5. RIBAVIRIN [Suspect]
     Indication: CHRONIC HEPATITIS C
     Dosage: 400 mg, qd
     Route: 048
     Dates: start: 20120201, end: 20120214
  6. RIBAVIRIN [Suspect]
     Dosage: 200 mg, qd
     Route: 048
     Dates: start: 20120215, end: 20120307
  7. MILMAG [Concomitant]
     Dosage: 3 DF, qd
     Route: 048
     Dates: end: 20120604
  8. SENNOSIDE                          /00571901/ [Concomitant]
     Dosage: 2 DF, prn
     Route: 048
  9. BROTIZOLAM [Concomitant]
     Dosage: 1 DF, qd
     Route: 048
  10. BROTIZOLAM [Concomitant]
     Dosage: 2 DF, qd
     Route: 048
  11. HOCHUEKKITO [Concomitant]
     Dosage: 3 Pack
     Route: 048
     Dates: end: 20120702

REACTIONS (3)
  - Depression [Not Recovered/Not Resolved]
  - Decreased appetite [Recovered/Resolved]
  - Anaemia [Recovered/Resolved]
